FAERS Safety Report 24416530 (Version 1)
Quarter: 2024Q4

REPORT INFORMATION
  Report Type: Spontaneous
  Country: US (occurrence: None)
  Receive Date: 20241007
  Receipt Date: 20241007
  Transmission Date: 20250115
  Serious: Yes (Disabling)
  Sender: Public
  Company Number: None

PATIENT
  Age: 20 Year
  Sex: Female
  Weight: 77.11 kg

DRUGS (7)
  1. NEXPLANON [Suspect]
     Active Substance: ETONOGESTREL
     Dates: start: 20240408
  2. CONCERTA [Concomitant]
     Active Substance: METHYLPHENIDATE HYDROCHLORIDE
  3. METOPROLOL [Concomitant]
     Active Substance: METOPROLOL
  4. LEXAPRO [Concomitant]
     Active Substance: ESCITALOPRAM OXALATE
  5. PROTONIX [Concomitant]
     Active Substance: PANTOPRAZOLE SODIUM
  6. LINZESS [Concomitant]
     Active Substance: LINACLOTIDE
  7. NEXPLANON [Concomitant]
     Active Substance: ETONOGESTREL

REACTIONS (9)
  - Post procedural infection [None]
  - Device related infection [None]
  - Blood pressure increased [None]
  - Loss of consciousness [None]
  - Hyperhidrosis [None]
  - Chills [None]
  - Heart rate increased [None]
  - Speech disorder [None]
  - Headache [None]

NARRATIVE: CASE EVENT DATE: 20240411
